FAERS Safety Report 18013915 (Version 1)
Quarter: 2020Q3

REPORT INFORMATION
  Report Type: Spontaneous
  Country: US (occurrence: US)
  Receive Date: 20200712
  Receipt Date: 20200712
  Transmission Date: 20201103
  Serious: Yes (Other)
  Sender: FDA-Public Use
  Company Number: None

PATIENT
  Age: 69 Year
  Sex: Female
  Weight: 78.3 kg

DRUGS (12)
  1. AMITRIPTYLINE HCL 10MG [Concomitant]
     Active Substance: AMITRIPTYLINE
  2. VITAMIN D [Concomitant]
     Active Substance: VITAMIN D NOS
  3. MOXIFLOXACIN HCL [Suspect]
     Active Substance: MOXIFLOXACIN
     Indication: SINUSITIS
     Dosage: ?          QUANTITY:1 TABLET(S);?
     Route: 048
     Dates: start: 20200710, end: 20200711
  4. ROSUVASTATIN. [Concomitant]
     Active Substance: ROSUVASTATIN
  5. CLONAZEPAM 0.5MG [Concomitant]
     Active Substance: CLONAZEPAM
  6. CALCIUM 5MG [Concomitant]
  7. CENTRUM MULTIVITAMIN FOR WOMEN [Concomitant]
  8. ALIGN [Concomitant]
     Active Substance: BIFIDOBACTERIUM LONGUM SUBSP. INFANTIS
  9. TIZANIDINE 4MG [Concomitant]
     Active Substance: TIZANIDINE
  10. LOW DOSE ASPIRIN [Concomitant]
     Active Substance: ASPIRIN
  11. SENNA PLUS [Concomitant]
     Active Substance: DOCUSATE SODIUM\SENNOSIDES\SENNOSIDES A AND B
  12. ADVIL AND ALEVE [Concomitant]

REACTIONS (3)
  - Paraesthesia [None]
  - Asthenia [None]
  - Muscle twitching [None]

NARRATIVE: CASE EVENT DATE: 20200710
